FAERS Safety Report 10310005 (Version 1)
Quarter: 2014Q3

REPORT INFORMATION
  Report Type: Spontaneous
  Country: US (occurrence: None)
  Receive Date: 20140715
  Receipt Date: 20140715
  Transmission Date: 20150326
  Serious: Yes (Hospitalization, Other)
  Sender: FDA-Public Use
  Company Number: None

PATIENT
  Age: 86 Year
  Sex: Female
  Weight: 81.19 kg

DRUGS (5)
  1. METFORMIN [Concomitant]
     Active Substance: METFORMIN HYDROCHLORIDE
  2. AMIODARONE 200 MG TEVA [Suspect]
     Active Substance: AMIODARONE
     Indication: ARRHYTHMIA
     Dosage: BY MOUTH
     Dates: start: 201403, end: 201405
  3. LISINOPRIL. [Concomitant]
     Active Substance: LISINOPRIL
  4. VITAMIN D3 [Concomitant]
     Active Substance: CHOLECALCIFEROL
  5. WARFARIN [Concomitant]
     Active Substance: WARFARIN

REACTIONS (3)
  - Pneumonia [None]
  - Asthenia [None]
  - Nail discolouration [None]

NARRATIVE: CASE EVENT DATE: 20140514
